FAERS Safety Report 8584900-7 (Version None)
Quarter: 2012Q3

REPORT INFORMATION
  Report Type: 
  Country: None (occurrence: None)
  Receive Date: 20120810
  Receipt Date: 20120808
  Transmission Date: 20120928
  Serious: No
  Sender: FDA-Public Use
  Company Number: US-PFIZER INC-2012193652

PATIENT
  Sex: Female

DRUGS (2)
  1. TOPAMAX [Interacting]
     Dosage: UNK
  2. PRISTIQ [Suspect]
     Dosage: 50 MG, UNK

REACTIONS (2)
  - DRUG INTERACTION [None]
  - RENAL DISORDER [None]
